FAERS Safety Report 12288098 (Version 2)
Quarter: 2016Q4

REPORT INFORMATION
  Report Type: Spontaneous
  Country: US (occurrence: US)
  Receive Date: 20160420
  Receipt Date: 20161104
  Transmission Date: 20170207
  Serious: No
  Sender: FDA-Public Use
  Company Number: US-CELGENEUS-USA-2016042923

PATIENT
  Sex: Female

DRUGS (1)
  1. OTEZLA [Suspect]
     Active Substance: APREMILAST
     Indication: PSORIASIS
     Dosage: 60 MILLIGRAM
     Route: 048
     Dates: start: 20150224

REACTIONS (5)
  - Diarrhoea [Recovered/Resolved]
  - Adverse drug reaction [Recovered/Resolved]
  - Nausea [Recovered/Resolved]
  - Psoriasis [Recovered/Resolved]
  - Abdominal discomfort [Recovered/Resolved]
